FAERS Safety Report 23905376 (Version 1)
Quarter: 2024Q2

REPORT INFORMATION
  Report Type: Spontaneous
  Country: CN (occurrence: CN)
  Receive Date: 20240527
  Receipt Date: 20240527
  Transmission Date: 20240716
  Serious: Yes (Hospitalization)
  Sender: FDA-Public Use
  Company Number: CN-002147023-NVSC2024CN110052

PATIENT
  Age: 34 Year
  Sex: Male
  Weight: 60 kg

DRUGS (3)
  1. CYCLOSPORINE [Suspect]
     Active Substance: CYCLOSPORINE
     Indication: Prophylaxis
     Dosage: 130 MG, BID
     Route: 041
     Dates: start: 20240411, end: 20240422
  2. CYCLOSPORINE [Suspect]
     Active Substance: CYCLOSPORINE
     Indication: Transplant rejection
     Dosage: 90 MG, BID
     Route: 041
     Dates: start: 20240423, end: 20240504
  3. DEXTROSE [Concomitant]
     Active Substance: DEXTROSE\DEXTROSE MONOHYDRATE
     Indication: Vehicle solution use
     Dosage: 250 ML, BID
     Route: 041
     Dates: start: 20240411, end: 20240504

REACTIONS (3)
  - Cystitis haemorrhagic [Recovering/Resolving]
  - Venoocclusive liver disease [Recovering/Resolving]
  - Hepatic function abnormal [Recovering/Resolving]

NARRATIVE: CASE EVENT DATE: 20240517
